FAERS Safety Report 6490936-2 (Version None)
Quarter: 2009Q4

REPORT INFORMATION
  Report Type: 
  Country: None (occurrence: None)
  Receive Date: 20091211
  Receipt Date: 20081215
  Transmission Date: 20100525
  Serious: No
  Sender: FDA-Public Use
  Company Number: US-TYCO HEALTHCARE/MALLINCKRODT-T200802178

PATIENT
  Age: 9 Year
  Sex: Male

DRUGS (1)
  1. METHYLIN [Suspect]
     Dosage: UNK
     Dates: start: 20080601

REACTIONS (1)
  - DEAFNESS [None]
